FAERS Safety Report 4565056-4 (Version None)
Quarter: 2005Q1

REPORT INFORMATION
  Report Type: 
  Country: None (occurrence: None)
  Receive Date: 20050112
  Receipt Date: 20050112
  Transmission Date: 20050727
  Serious: No
  Sender: FDA-Public Use
  Company Number: None

PATIENT
  Sex: Female
  Weight: 109.3169 kg

DRUGS (1)
  1. LOTENSIN [Suspect]
     Indication: HYPERTENSION
     Dosage: 20 MG QD PO
     Route: 048

REACTIONS (1)
  - NAUSEA [None]
